FAERS Safety Report 25163042 (Version 2)
Quarter: 2025Q2

REPORT INFORMATION
  Report Type: Spontaneous
  Country: US (occurrence: US)
  Receive Date: 20250404
  Receipt Date: 20250606
  Transmission Date: 20250717
  Serious: No
  Sender: MYLAN
  Company Number: US-MYLANLABS-2025M1026877

PATIENT
  Age: 93 Year
  Sex: Female

DRUGS (8)
  1. ESTRADIOL [Suspect]
     Active Substance: ESTRADIOL
     Indication: Product used for unknown indication
     Route: 067
  2. ESTRADIOL [Suspect]
     Active Substance: ESTRADIOL
  3. ESTRADIOL [Suspect]
     Active Substance: ESTRADIOL
  4. ESTRADIOL [Suspect]
     Active Substance: ESTRADIOL
     Route: 067
  5. ESTRADIOL [Suspect]
     Active Substance: ESTRADIOL
     Dosage: UNK, 3XW
     Route: 067
  6. ESTRADIOL [Suspect]
     Active Substance: ESTRADIOL
     Dosage: UNK, 3XW
  7. ESTRADIOL [Suspect]
     Active Substance: ESTRADIOL
     Dosage: UNK, 3XW
  8. ESTRADIOL [Suspect]
     Active Substance: ESTRADIOL
     Dosage: UNK, 3XW
     Route: 067

REACTIONS (4)
  - Device difficult to use [Unknown]
  - Product label confusion [Unknown]
  - Product packaging issue [Unknown]
  - Product design issue [Unknown]
